FAERS Safety Report 4907934-X (Version None)
Quarter: 2006Q1

REPORT INFORMATION
  Report Type: 
  Country: None (occurrence: None)
  Receive Date: 20060210
  Receipt Date: 20060126
  Transmission Date: 20060701
  Serious: Yes (Other)
  Sender: FDA-Public Use
  Company Number: HQWYE577630JAN06

PATIENT
  Sex: Male

DRUGS (8)
  1. ENBREL [Suspect]
     Indication: RHEUMATOID ARTHRITIS
     Route: 058
     Dates: start: 20050623, end: 20051214
  2. ENBREL [Suspect]
     Route: 058
     Dates: start: 20050831, end: 20051214
  3. GLORIAMIN [Suspect]
  4. FOLIAMIN [Concomitant]
     Indication: DRUG USE FOR UNKNOWN INDICATION
     Dosage: UNKNOWN
     Route: 048
  5. PREDNISOLONE [Concomitant]
     Indication: RHEUMATOID ARTHRITIS
     Dosage: UNKNOWN
     Route: 048
  6. MUCOSTA [Concomitant]
     Indication: GASTROINTESTINAL DISORDER
     Dosage: UNKNOWN
     Route: 048
  7. GASTER [Concomitant]
     Indication: GASTROINTESTINAL DISORDER
     Dosage: UNKNOWN
     Route: 048
  8. METHOTREXATE [Concomitant]
     Dates: start: 20031021, end: 20050727

REACTIONS (3)
  - GASTROENTERITIS [None]
  - SHOCK [None]
  - UPPER RESPIRATORY TRACT INFECTION [None]
